FAERS Safety Report 10254129 (Version 2)
Quarter: 2014Q2

REPORT INFORMATION
  Report Type: Spontaneous
  Country: BE (occurrence: BE)
  Receive Date: 20140623
  Receipt Date: 20140623
  Transmission Date: 20141212
  Serious: Yes (Hospitalization)
  Sender: FDA-Public Use
  Company Number: PHHY2014BE075219

PATIENT
  Age: 10 Year
  Sex: 0

DRUGS (2)
  1. RILATINE [Suspect]
     Indication: AUTISM SPECTRUM DISORDER
     Dosage: 10 MG, TWICE DAILY (NOT IN WEEKENDS)
  2. RILATINE [Suspect]
     Indication: ATTENTION DEFICIT/HYPERACTIVITY DISORDER
     Dosage: UNK

REACTIONS (6)
  - Suicidal ideation [Unknown]
  - Intentional overdose [Recovered/Resolved]
  - Respiratory rate increased [Unknown]
  - Stress [Unknown]
  - Blood pressure increased [Recovered/Resolved]
  - Blood pressure decreased [Recovered/Resolved]
